FAERS Safety Report 8160082-0 (Version None)
Quarter: 2012Q1

REPORT INFORMATION
  Report Type: 
  Country: None (occurrence: None)
  Receive Date: 20120223
  Receipt Date: 20120215
  Transmission Date: 20120608
  Serious: Yes (Other)
  Sender: FDA-Public Use
  Company Number: PHHY2012BR013165

PATIENT
  Age: 33 Year
  Sex: Female

DRUGS (4)
  1. AZATHIOPRINE [Suspect]
     Indication: SYSTEMIC LUPUS ERYTHEMATOSUS
     Dosage: UNK UKN, UNK
  2. STEROIDS NOS [Concomitant]
     Indication: SYSTEMIC LUPUS ERYTHEMATOSUS
     Dosage: UNK UKN, UNK
  3. MYCOPHENOLATE MOFETIL [Suspect]
     Indication: SYSTEMIC LUPUS ERYTHEMATOSUS
     Dosage: 2 G, QD
  4. CYCLOPHOSPHAMIDE [Suspect]
     Indication: SYSTEMIC LUPUS ERYTHEMATOSUS
     Dosage: UNK UKN, UNK

REACTIONS (10)
  - CERVICAL DYSPLASIA [None]
  - ANOGENITAL WARTS [None]
  - ACANTHOSIS [None]
  - HYPERKERATOSIS [None]
  - VULVAR DYSPLASIA [None]
  - VULVOVAGINAL HUMAN PAPILLOMA VIRUS INFECTION [None]
  - SKIN LESION [None]
  - PROTEINURIA [None]
  - PAPILLOMA VIRAL INFECTION [None]
  - PAPILLOMA [None]
